FAERS Safety Report 8434830-6 (Version None)
Quarter: 2012Q2

REPORT INFORMATION
  Report Type: 
  Country: None (occurrence: None)
  Receive Date: 20120608
  Receipt Date: 20120524
  Transmission Date: 20120825
  Serious: Yes (Other)
  Sender: FDA-Public Use
  Company Number: 2012-001983

PATIENT
  Age: 79 Year
  Sex: Female

DRUGS (9)
  1. SINGULAIR [Concomitant]
  2. FUROSEMIDE [Concomitant]
  3. LISINOPRIL [Concomitant]
  4. METOPROLOL TARTRATE [Concomitant]
  5. ACTONEL [Suspect]
     Indication: OSTEOPOROSIS
     Dosage: 150 MG ONCE MONTHLY, ORAL 150 MG, 1/MONTH, ORAL
     Route: 048
     Dates: end: 20110601
  6. ACTONEL [Suspect]
     Indication: OSTEOPOROSIS
     Dosage: 150 MG ONCE MONTHLY, ORAL 150 MG, 1/MONTH, ORAL
     Route: 048
     Dates: start: 20111201
  7. LOVASTATIN [Concomitant]
  8. SPIRONOLACTONE [Concomitant]
  9. SPIRIVA [Concomitant]

REACTIONS (1)
  - LYMPHOMA [None]
